FAERS Safety Report 5302917-2 (Version None)
Quarter: 2007Q2

REPORT INFORMATION
  Report Type: 
  Country: None (occurrence: None)
  Receive Date: 20070419
  Receipt Date: 20070419
  Transmission Date: 20071010
  Serious: Yes (Hospitalization)
  Sender: FDA-Public Use
  Company Number: None

PATIENT
  Sex: Female
  Weight: 63.9 kg

DRUGS (9)
  1. FLUOROURACIL [Suspect]
     Dosage: 6800 MG
  2. MITOMYCIN-C BULK POWDER [Suspect]
     Dosage: 17 MG
  3. COMPAZINE [Concomitant]
  4. FLAGYL [Concomitant]
  5. NEXIUM [Concomitant]
  6. ZOSYN [Concomitant]
  7. SILVADENE [Concomitant]
  8. ZOFRAN [Concomitant]
  9. IMODIUM [Concomitant]

REACTIONS (11)
  - ABDOMINAL PAIN [None]
  - BACTERIAL INFECTION [None]
  - BLOOD CULTURE POSITIVE [None]
  - CYSTITIS ESCHERICHIA [None]
  - DIARRHOEA [None]
  - GASTROINTESTINAL OEDEMA [None]
  - INTUSSUSCEPTION [None]
  - NAUSEA [None]
  - NEUTROPENIA [None]
  - RASH [None]
  - VOMITING [None]
